FAERS Safety Report 7302732-4 (Version None)
Quarter: 2011Q1

REPORT INFORMATION
  Report Type: 
  Country: None (occurrence: None)
  Receive Date: 20110218
  Receipt Date: 20110218
  Transmission Date: 20110831
  Serious: Yes (Hospitalization)
  Sender: FDA-Public Use
  Company Number: IT-ABBOTT-11P-083-0703650-00

PATIENT
  Sex: Female

DRUGS (1)
  1. KLACID [Suspect]
     Indication: PARONYCHIA
     Route: 048
     Dates: start: 20110201, end: 20110202

REACTIONS (2)
  - PRURITUS [None]
  - URTICARIA [None]
